FAERS Safety Report 4604653-4 (Version None)
Quarter: 2005Q2

REPORT INFORMATION
  Report Type: 
  Country: None (occurrence: None)
  Receive Date: 20050223
  Receipt Date: 20041220
  Transmission Date: 20051028
  Serious: No
  Sender: FDA-Public Use
  Company Number: PHEH2004US08228

PATIENT
  Sex: Female

DRUGS (3)
  1. ZELNORM [Suspect]
     Dosage: 6 MG, QD, ORAL; 1/2 TABLET, QD, ORAL
     Route: 048
     Dates: start: 20040725
  2. LEVOXYL [Concomitant]
  3. WELLBUTRIN [Concomitant]

REACTIONS (3)
  - ANXIETY [None]
  - FEELING ABNORMAL [None]
  - FEELING JITTERY [None]
